FAERS Safety Report 10328589 (Version 2)
Quarter: 2014Q3

REPORT INFORMATION
  Report Type: Report from Study
  Country: AU (occurrence: AU)
  Receive Date: 20140721
  Receipt Date: 20140721
  Transmission Date: 20150326
  Serious: Yes (Death, Hospitalization)
  Sender: FDA-Public Use
  Company Number: AU-ASTRAZENECA-2013SE69112

PATIENT
  Age: 28756 Day
  Sex: Male

DRUGS (1)
  1. ZOLADEX [Suspect]
     Active Substance: GOSERELIN ACETATE
     Indication: PROSTATE CANCER
     Route: 058

REACTIONS (5)
  - Pollakiuria [Not Recovered/Not Resolved]
  - Urinary tract obstruction [Recovered/Resolved]
  - Fluid retention [Unknown]
  - Death [Fatal]
  - Urinary retention [Recovered/Resolved]

NARRATIVE: CASE EVENT DATE: 20130529
